FAERS Safety Report 24609002 (Version 2)
Quarter: 2024Q4

REPORT INFORMATION
  Report Type: Spontaneous
  Country: US (occurrence: US)
  Receive Date: 20241112
  Receipt Date: 20241118
  Transmission Date: 20250114
  Serious: No
  Sender: PFIZER
  Company Number: US-PFIZER INC-202400296860

PATIENT
  Age: 43 Year
  Sex: Female

DRUGS (2)
  1. NURTEC ODT [Suspect]
     Active Substance: RIMEGEPANT SULFATE
     Indication: Prophylaxis
     Dosage: UNK, ALTERNATE DAY
  2. NURTEC ODT [Suspect]
     Active Substance: RIMEGEPANT SULFATE
     Indication: Migraine

REACTIONS (5)
  - Nausea [Unknown]
  - Taste disorder [Unknown]
  - Somnolence [Unknown]
  - Thinking abnormal [Unknown]
  - Speech disorder [Unknown]
